FAERS Safety Report 11018175 (Version 2)
Quarter: 2015Q2

REPORT INFORMATION
  Report Type: Spontaneous
  Country: US (occurrence: US)
  Receive Date: 20150412
  Receipt Date: 20150524
  Transmission Date: 20150821
  Serious: No
  Sender: FDA-Public Use
  Company Number: US-JNJFOC-20130707862

PATIENT

DRUGS (2)
  1. DOXORUBICIN [Suspect]
     Active Substance: DOXORUBICIN
     Indication: MALIGNANT FIBROUS HISTIOCYTOMA
     Dosage: ON DAY 1 OF 21 DAY CYCLES, FOR UP TO 8 CYCLES
     Route: 042
  2. ALDOXORUBICIN [Suspect]
     Active Substance: DOXORUBICIN
     Indication: MALIGNANT FIBROUS HISTIOCYTOMA
     Dosage: EITHER 175, 240 OR 320 MG/M2, ON DAY 1 OF 21 DAY CYCLES
     Route: 042

REACTIONS (1)
  - Product use issue [Unknown]
